FAERS Safety Report 9398912 (Version 2)
Quarter: 2013Q3

REPORT INFORMATION
  Report Type: Spontaneous
  Country: JP (occurrence: JP)
  Receive Date: 20130712
  Receipt Date: 20130717
  Transmission Date: 20140515
  Serious: Yes (Death)
  Sender: FDA-Public Use
  Company Number: JP-GILEAD-2013-0078946

PATIENT
  Age: 75 Year
  Sex: Female

DRUGS (4)
  1. AMBRISENTAN [Suspect]
     Indication: PULMONARY HYPERTENSION
     Dosage: 2.5 MG, UNK
     Route: 048
     Dates: end: 20130503
  2. BASEN [Concomitant]
     Route: 048
  3. TAKEPRON [Concomitant]
     Route: 048
  4. GLIMICRON [Concomitant]
     Route: 048

REACTIONS (1)
  - Right ventricular failure [Fatal]
